FAERS Safety Report 8262212-9 (Version None)
Quarter: 2012Q2

REPORT INFORMATION
  Report Type: 
  Country: None (occurrence: None)
  Receive Date: 20120402
  Receipt Date: 20120321
  Transmission Date: 20120825
  Serious: Yes (Other)
  Sender: FDA-Public Use
  Company Number: JP-2012-12021

PATIENT
  Age: 78 Year
  Sex: Male
  Weight: 45 kg

DRUGS (16)
  1. OLMESARTAN MEDOXOMIL [Concomitant]
  2. CONIEL (BENIDIPINE HYDROCHLORIDE) [Concomitant]
  3. DOXAZOSIN MESYLATE [Concomitant]
  4. TRICHLORMETHIAZIDE [Concomitant]
  5. DIART (AZOSEMIDE) [Concomitant]
  6. CARVEDILOL [Concomitant]
  7. ADALAT [Concomitant]
  8. PRAVASTATIN SODIUM [Concomitant]
  9. GLUCOBAY [Concomitant]
  10. MILLISROL (GLYCERYL TRINITRATE) [Concomitant]
  11. XYLOCAINE [Concomitant]
  12. ISOSORBIDE DINITRATE [Concomitant]
  13. ASPIRIN [Concomitant]
  14. SAMSCA [Suspect]
     Indication: CARDIAC FAILURE CONGESTIVE
     Dosage: 3.75 MG MILLIGRAM(S), QD, ORAL
     Route: 048
     Dates: start: 20120216, end: 20120222
  15. NICARDPINE (NICARDIPINE HYDROCHLORIDE) [Concomitant]
  16. HANP (CARPERITIDE) [Concomitant]

REACTIONS (7)
  - BLOOD CREATININE INCREASED [None]
  - HAEMOGLOBIN DECREASED [None]
  - RED BLOOD CELL COUNT DECREASED [None]
  - BLOOD UREA INCREASED [None]
  - HYPERKALAEMIA [None]
  - DEHYDRATION [None]
  - HYPONATRAEMIA [None]
